FAERS Safety Report 11743612 (Version 2)
Quarter: 2015Q4

REPORT INFORMATION
  Report Type: Spontaneous
  Country: US (occurrence: US)
  Receive Date: 20151116
  Receipt Date: 20151211
  Transmission Date: 20160304
  Serious: Yes (Death, Other)
  Sender: FDA-Public Use
  Company Number: US-GLAXOSMITHKLINE-US2015GSK162074

PATIENT
  Sex: Female

DRUGS (39)
  1. EPINEPHRINE. [Concomitant]
     Active Substance: EPINEPHRINE
  2. FLEXERIL [Concomitant]
     Active Substance: CYCLOBENZAPRINE HYDROCHLORIDE
  3. REGLAN [Concomitant]
     Active Substance: METOCLOPRAMIDE HYDROCHLORIDE
  4. SEROQUEL [Concomitant]
     Active Substance: QUETIAPINE FUMARATE
  5. ROBINUL [Concomitant]
     Active Substance: GLYCOPYRROLATE
  6. QUESTRAN [Concomitant]
     Active Substance: CHOLESTYRAMINE
  7. INTROPIN [Concomitant]
     Active Substance: DOPAMINE HYDROCHLORIDE
  8. ZOLOFT [Concomitant]
     Active Substance: SERTRALINE HYDROCHLORIDE
  9. PEPCID [Concomitant]
     Active Substance: FAMOTIDINE
  10. HALDOL [Concomitant]
     Active Substance: HALOPERIDOL
  11. VERSED [Concomitant]
     Active Substance: MIDAZOLAM HYDROCHLORIDE
  12. VENTOLIN HFA [Concomitant]
     Active Substance: ALBUTEROL SULFATE
  13. BENTYL [Concomitant]
     Active Substance: DICYCLOMINE HYDROCHLORIDE
  14. NOVOLIN [Concomitant]
     Active Substance: INSULIN HUMAN
  15. ANUSOL HC [Concomitant]
     Active Substance: HYDROCORTISONE
  16. PRINIVIL [Concomitant]
     Active Substance: LISINOPRIL
  17. ZOFRAN [Concomitant]
     Active Substance: ONDANSETRON HYDROCHLORIDE
  18. PROTONIX [Concomitant]
     Active Substance: PANTOPRAZOLE SODIUM
  19. LEVOPHED [Concomitant]
     Active Substance: NOREPINEPHRINE BITARTRATE
  20. TRICOR [Concomitant]
     Active Substance: FENOFIBRATE
  21. NEURONTIN [Concomitant]
     Active Substance: GABAPENTIN
  22. LINZESS [Concomitant]
     Active Substance: LINACLOTIDE
  23. ULTRAM [Concomitant]
     Active Substance: TRAMADOL HYDROCHLORIDE
  24. SUBLIMAZE [Concomitant]
     Active Substance: FENTANYL CITRATE
  25. HUMULIN NOS [Concomitant]
     Active Substance: INSULIN HUMAN
  26. ATROVENT HFA [Concomitant]
     Active Substance: IPRATROPIUM BROMIDE
  27. COREG CR [Suspect]
     Active Substance: CARVEDILOL PHOSPHATE
     Indication: PRODUCT USED FOR UNKNOWN INDICATION
     Dosage: 20 MG, UNK
  28. ASPIRIN. [Suspect]
     Active Substance: ASPIRIN
     Indication: PRODUCT USED FOR UNKNOWN INDICATION
  29. IBUPROFEN. [Suspect]
     Active Substance: IBUPROFEN
     Indication: PRODUCT USED FOR UNKNOWN INDICATION
  30. MORPHINE [Concomitant]
     Active Substance: MORPHINE
  31. NOVOLOG [Concomitant]
     Active Substance: INSULIN ASPART
  32. LANTUS SOLOSTAR [Concomitant]
     Active Substance: INSULIN GLARGINE
  33. FLORASTOR [Concomitant]
     Active Substance: SACCHAROMYCES CEREVISIAE
  34. DEXTROSE 50% [Concomitant]
     Active Substance: DEXTROSE
  35. SODIUM BICARB [Concomitant]
  36. ADVAIR HFA [Suspect]
     Active Substance: FLUTICASONE PROPIONATE\SALMETEROL XINAFOATE
     Indication: PRODUCT USED FOR UNKNOWN INDICATION
  37. PROVENTIL HFA [Concomitant]
     Active Substance: ALBUTEROL SULFATE
  38. XALATAN [Concomitant]
     Active Substance: LATANOPROST
  39. ZESTRIL [Concomitant]
     Active Substance: LISINOPRIL

REACTIONS (30)
  - Shock [Fatal]
  - Respiratory failure [Fatal]
  - Sinus tachycardia [Unknown]
  - QRS axis abnormal [Unknown]
  - Electrocardiogram abnormal [Unknown]
  - Death [Fatal]
  - Multi-organ failure [Fatal]
  - Lethargy [Unknown]
  - Pain [Unknown]
  - Cardiac arrest [Fatal]
  - Acute myocardial infarction [Fatal]
  - Mechanical ventilation [Unknown]
  - Respiratory acidosis [Unknown]
  - Hyperglycaemia [Unknown]
  - Abdominal discomfort [Unknown]
  - Acute kidney injury [Unknown]
  - Hypoxic-ischaemic encephalopathy [Unknown]
  - Pupil fixed [Unknown]
  - Renal failure [Unknown]
  - Lactic acidosis [Unknown]
  - Ventricular fibrillation [Unknown]
  - Atrial fibrillation [Unknown]
  - Malaise [Unknown]
  - Mydriasis [Unknown]
  - Blood potassium increased [Unknown]
  - Drug hypersensitivity [Unknown]
  - Brain injury [Fatal]
  - Emergency care [Unknown]
  - Unresponsive to stimuli [Unknown]
  - Defect conduction intraventricular [Unknown]
